FAERS Safety Report 5901618-7 (Version None)
Quarter: 2008Q3

REPORT INFORMATION
  Report Type: 
  Country: None (occurrence: None)
  Receive Date: 20080926
  Receipt Date: 20080926
  Transmission Date: 20090109
  Serious: Yes (Hospitalization)
  Sender: FDA-Public Use
  Company Number: None

PATIENT
  Age: 74 Year
  Sex: Female
  Weight: 87.99 kg

DRUGS (2)
  1. REGULAR INSULIN [Suspect]
     Indication: TYPE 2 DIABETES MELLITUS
     Dosage: 26 UNITS/HR IV DRIP
     Route: 041
     Dates: start: 20080924, end: 20080925
  2. SODIUM CHLORIDE 0.9% [Suspect]
     Route: 041

REACTIONS (4)
  - BLOOD GLUCOSE DECREASED [None]
  - HYPERGLYCAEMIA [None]
  - INFUSION SITE EXTRAVASATION [None]
  - LABORATORY TEST INTERFERENCE [None]
